FAERS Safety Report 10434075 (Version 6)
Quarter: 2015Q2

REPORT INFORMATION
  Report Type: Report from Study
  Country: US (occurrence: US)
  Receive Date: 20140905
  Receipt Date: 20150623
  Transmission Date: 20150821
  Serious: Yes (Hospitalization)
  Sender: FDA-Public Use
  Company Number: US-SA-2014SA120082

PATIENT
  Age: 57 Year
  Sex: Female

DRUGS (1)
  1. AUBAGIO [Suspect]
     Active Substance: TERIFLUNOMIDE
     Indication: MULTIPLE SCLEROSIS
     Route: 048
     Dates: start: 20140916

REACTIONS (9)
  - Hypersomnia [Unknown]
  - Gastric disorder [Unknown]
  - Dysstasia [Unknown]
  - Multiple sclerosis relapse [Recovering/Resolving]
  - Memory impairment [Unknown]
  - Arthralgia [Unknown]
  - Muscle spasms [Unknown]
  - Back injury [Unknown]
  - Nervous system disorder [Unknown]

NARRATIVE: CASE EVENT DATE: 2014
